FAERS Safety Report 5008515-2 (Version None)
Quarter: 2006Q2

REPORT INFORMATION
  Report Type: 
  Country: None (occurrence: None)
  Receive Date: 20060522
  Receipt Date: 20060522
  Transmission Date: 20061013
  Serious: Yes (Hospitalization)
  Sender: FDA-Public Use
  Company Number: None

PATIENT
  Age: 60 Year
  Sex: Male
  Weight: 134 kg

DRUGS (9)
  1. WARFARIN SODIUM [Suspect]
     Indication: CEREBROVASCULAR ACCIDENT
     Dosage: 7.5MG/10MG   MOWEFR/ROW   PO
     Route: 048
     Dates: start: 20030411, end: 20060520
  2. WARFARIN SODIUM [Suspect]
     Indication: PULMONARY EMBOLISM
     Dosage: 7.5MG/10MG   MOWEFR/ROW   PO
     Route: 048
     Dates: start: 20030411, end: 20060520
  3. GLIPIZIDE [Concomitant]
  4. FUROSEMIDE [Concomitant]
  5. LOSARTAN POTASSIUM [Concomitant]
  6. ASPIRIN [Concomitant]
  7. LEVOTHYROXINE SODIUM [Concomitant]
  8. OMEPRAZOLE [Concomitant]
  9. LOVASTATIN [Concomitant]

REACTIONS (3)
  - DIVERTICULUM [None]
  - LOWER GASTROINTESTINAL HAEMORRHAGE [None]
  - RECTAL HAEMORRHAGE [None]
